FAERS Safety Report 7633980-1 (Version None)
Quarter: 2011Q3

REPORT INFORMATION
  Report Type: 
  Country: None (occurrence: None)
  Receive Date: 20110725
  Receipt Date: 20110720
  Transmission Date: 20111222
  Serious: Yes (Hospitalization)
  Sender: FDA-Public Use
  Company Number: CH-PFIZER INC-2011164241

PATIENT
  Age: 69 Year
  Sex: Female

DRUGS (5)
  1. LISINOPRIL [Interacting]
     Indication: ESSENTIAL HYPERTENSION
     Dosage: [LISINOPRIL 20 MG] / [HYDROCHLOROTHIAZIDE 12.5 MG], 1X/DAY
     Route: 048
  2. ATORVASTATIN CALCIUM [Suspect]
     Indication: HYPERLIPIDAEMIA
     Dosage: 20 MG, 1X/DAY
     Route: 048
  3. JANUMET [Interacting]
     Indication: TYPE 2 DIABETES MELLITUS
     Dosage: [SITAGLIPTINE 50 MG] / [METFORMIN 1000 MG], 3X/DAY
     Route: 048
     Dates: start: 20100101
  4. QUANTALAN [Concomitant]
     Indication: DIARRHOEA
     Dosage: 4 G DAILY
     Route: 048
     Dates: start: 20100101
  5. ESCITALOPRAM [Concomitant]
     Indication: DEPRESSION
     Dosage: 10 MG, 1X/DAY
     Route: 048

REACTIONS (2)
  - PANCREATITIS ACUTE [None]
  - DRUG INTERACTION [None]
